FAERS Safety Report 6638083-0 (Version None)
Quarter: 2010Q1

REPORT INFORMATION
  Report Type: 
  Country: None (occurrence: None)
  Receive Date: 20100317
  Receipt Date: 20100304
  Transmission Date: 20100710
  Serious: Yes (Other)
  Sender: FDA-Public Use
  Company Number: CA-PFIZER INC-2009301574

PATIENT
  Sex: Female

DRUGS (2)
  1. ZELDOX [Suspect]
     Dosage: 40 MG, 2X/DAY
  2. PRISTIQ [Interacting]
     Dosage: 50 MG, UNK

REACTIONS (5)
  - DRUG INTERACTION [None]
  - FLUID RETENTION [None]
  - HEADACHE [None]
  - NAUSEA [None]
  - OEDEMA PERIPHERAL [None]
